FAERS Safety Report 11323644 (Version 1)
Quarter: 2015Q3

REPORT INFORMATION
  Report Type: Spontaneous
  Country: FR (occurrence: FR)
  Receive Date: 20150730
  Receipt Date: 20150730
  Transmission Date: 20151125
  Serious: Yes (Hospitalization)
  Sender: FDA-Public Use
  Company Number: FR-SA-2015SA110463

PATIENT
  Age: 1 Day
  Sex: Male
  Weight: 3.15 kg

DRUGS (4)
  1. STILNOX [Suspect]
     Active Substance: ZOLPIDEM TARTRATE
     Route: 064
  2. EFFEXOR [Suspect]
     Active Substance: VENLAFAXINE HYDROCHLORIDE
     Route: 064
  3. ZOLOFT [Suspect]
     Active Substance: SERTRALINE HYDROCHLORIDE
     Route: 064
  4. IMOVANE [Suspect]
     Active Substance: ZOPICLONE
     Route: 064

REACTIONS (4)
  - Bradycardia neonatal [Unknown]
  - Foetal exposure during pregnancy [Unknown]
  - Pulmonary arterial hypertension [Unknown]
  - Neonatal hypoxia [Unknown]

NARRATIVE: CASE EVENT DATE: 20150120
